FAERS Safety Report 6758934-9 (Version None)
Quarter: 2010Q2

REPORT INFORMATION
  Report Type: 
  Country: None (occurrence: None)
  Receive Date: 20100607
  Receipt Date: 20100505
  Transmission Date: 20101027
  Serious: No
  Sender: FDA-Public Use
  Company Number: US-BAYER-201015227BCC

PATIENT
  Age: 79 Year
  Sex: Female
  Weight: 68 kg

DRUGS (2)
  1. ALEVE (CAPLET) [Suspect]
     Indication: ARTHRALGIA
     Dosage: TOTAL DAILY DOSE: 440 MG  UNIT DOSE: 220 MG
     Route: 048
  2. UNKNOWN HIGH BLOOD PRESSURE PILL [Concomitant]
     Indication: HYPERTENSION

REACTIONS (2)
  - BACK PAIN [None]
  - FOREIGN BODY [None]
